FAERS Safety Report 11683374 (Version 1)
Quarter: 2015Q4

REPORT INFORMATION
  Report Type: Spontaneous
  Country: US (occurrence: US)
  Receive Date: 20151029
  Receipt Date: 20151029
  Transmission Date: 20160304
  Serious: No
  Sender: FDA-Public Use
  Company Number: US-MYLANLABS-2015M1014988

PATIENT
  Age: 73 Year
  Sex: Female
  Weight: 54.42 kg

DRUGS (6)
  1. MIRAPEX [Concomitant]
     Active Substance: PRAMIPEXOLE DIHYDROCHLORIDE
     Indication: PARKINSON^S DISEASE
     Dosage: 0.5 MG, Q2H
  2. CARBIDOPA AND LEVODOPA [Suspect]
     Active Substance: CARBIDOPA\LEVODOPA
     Dosage: 12.5/50 MG, Q2H AT 8AM, 10AM, NOON, 2PM, 4PM, 6PM, 8PM, 10PM
     Route: 048
     Dates: start: 20150426, end: 20150426
  3. CARBIDOPA AND LEVODOPA [Suspect]
     Active Substance: CARBIDOPA\LEVODOPA
     Indication: PARKINSON^S DISEASE
     Dosage: 12.5/50 MG, Q2H
     Route: 048
     Dates: start: 20150422, end: 20150424
  4. ZOLOFT [Concomitant]
     Active Substance: SERTRALINE HYDROCHLORIDE
     Dosage: UNK
  5. CARBIDOPA AND LEVODOPA [Suspect]
     Active Substance: CARBIDOPA\LEVODOPA
     Dosage: 25/100MG AT 6AM
     Dates: end: 20150426
  6. ALEVE [Concomitant]
     Active Substance: NAPROXEN SODIUM
     Dosage: UNK

REACTIONS (4)
  - Restless legs syndrome [Recovered/Resolved]
  - Sleep talking [Recovered/Resolved]
  - Insomnia [Recovered/Resolved]
  - Dyskinesia [Recovered/Resolved]

NARRATIVE: CASE EVENT DATE: 20150422
